FAERS Safety Report 11523360 (Version 1)
Quarter: 2015Q3

REPORT INFORMATION
  Report Type: Spontaneous
  Country: US (occurrence: US)
  Receive Date: 20150903
  Receipt Date: 20150903
  Transmission Date: 20151125
  Serious: Yes (Other)
  Sender: FDA-Public Use
  Company Number: US-ELI_LILLY_AND_COMPANY-US201302000138

PATIENT
  Age: 44 Year
  Sex: Female

DRUGS (4)
  1. CYMBALTA [Suspect]
     Active Substance: DULOXETINE HYDROCHLORIDE
     Indication: MAJOR DEPRESSION
     Dosage: 60 MG, EACH MORNING
  2. LAMICTAL [Concomitant]
     Active Substance: LAMOTRIGINE
     Dosage: 100 MG, QD
  3. BUSPAR [Concomitant]
     Active Substance: BUSPIRONE HYDROCHLORIDE
     Dosage: 20 MG, BID
  4. CYMBALTA [Suspect]
     Active Substance: DULOXETINE HYDROCHLORIDE
     Dosage: 30 MG, EACH EVENING

REACTIONS (8)
  - Tongue disorder [Recovering/Resolving]
  - Drooling [Recovering/Resolving]
  - Muscle tightness [Recovering/Resolving]
  - Tardive dyskinesia [Recovering/Resolving]
  - Grimacing [Recovering/Resolving]
  - Serotonin syndrome [Recovering/Resolving]
  - Excessive eye blinking [Recovering/Resolving]
  - Tremor [Recovering/Resolving]
